FAERS Safety Report 5343257-5 (Version None)
Quarter: 2007Q2

REPORT INFORMATION
  Report Type: 
  Country: None (occurrence: None)
  Receive Date: 20070502
  Receipt Date: 20061128
  Transmission Date: 20071010
  Serious: Yes (Hospitalization)
  Sender: FDA-Public Use
  Company Number: PHEH2006US14777

PATIENT
  Sex: Male

DRUGS (4)
  1. LOTREL [Suspect]
     Dosage: ORAL
     Route: 048
  2. BETA BLOCKING AGENTS (NO INGREDIENTS/SUBSTANCES) [Concomitant]
  3. ANGIOTENSIN CONVERTING ENZYME BLOCKERS (NO INGREDIENTS/SUBSTANCES) [Concomitant]
  4. BENICAR [Concomitant]

REACTIONS (1)
  - ERECTILE DYSFUNCTION [None]
